FAERS Safety Report 20211878 (Version 1)
Quarter: 2021Q4

REPORT INFORMATION
  Report Type: Spontaneous
  Country: US (occurrence: None)
  Receive Date: 20211221
  Receipt Date: 20211221
  Transmission Date: 20220303
  Serious: Yes (Hospitalization)
  Sender: FDA-Public Use
  Company Number: None

PATIENT
  Sex: Male

DRUGS (3)
  1. HUMIRA [Suspect]
     Active Substance: ADALIMUMAB
     Indication: Colitis
     Dosage: OTHER QUANTITY : 40 MG/0.4ML;?FREQUENCY : EVERY OTHER WEEK;?
     Route: 058
     Dates: start: 20211019
  2. HUMIRA [Concomitant]
     Active Substance: ADALIMUMAB
  3. UV STARTER [Concomitant]

REACTIONS (2)
  - Condition aggravated [None]
  - Quality of life decreased [None]
